FAERS Safety Report 11784765 (Version 8)
Quarter: 2020Q2

REPORT INFORMATION
  Report Type: Report from Study
  Country: CA (occurrence: CA)
  Receive Date: 20151130
  Receipt Date: 20200626
  Transmission Date: 20200713
  Serious: Yes (Other)
  Sender: FDA-Public Use
  Company Number: CA-ROCHE-1216062

PATIENT
  Age: 58 Year
  Sex: Male
  Weight: 77.18 kg

DRUGS (11)
  1. RITUXAN [Suspect]
     Active Substance: RITUXIMAB
     Indication: ANKYLOSING SPONDYLITIS
     Dosage: LAST DOSE OF RITUXIMAB ON 07/DEC/2015
     Route: 042
     Dates: start: 20121018
  2. RITUXAN [Suspect]
     Active Substance: RITUXIMAB
     Indication: OFF LABEL USE
  3. DIPHENHYDRAMINE HCL [Concomitant]
     Active Substance: DIPHENHYDRAMINE HYDROCHLORIDE
     Indication: PREMEDICATION
     Route: 048
     Dates: start: 20121018
  4. FENTANYL. [Concomitant]
     Active Substance: FENTANYL
     Route: 065
  5. PROLIA [Concomitant]
     Active Substance: DENOSUMAB
     Route: 065
     Dates: start: 201702
  6. ACETAMINOPHEN. [Concomitant]
     Active Substance: ACETAMINOPHEN
     Indication: PREMEDICATION
     Route: 048
     Dates: start: 20121018
  7. FOLIC ACID. [Concomitant]
     Active Substance: FOLIC ACID
  8. PERCOCET [Suspect]
     Active Substance: ACETAMINOPHEN\OXYCODONE HYDROCHLORIDE
     Indication: PRODUCT USED FOR UNKNOWN INDICATION
     Route: 065
  9. METHYLPREDNISOLONE. [Concomitant]
     Active Substance: METHYLPREDNISOLONE
     Route: 042
     Dates: start: 20121018
  10. METHOTREXATE. [Concomitant]
     Active Substance: METHOTREXATE
  11. BACLOFEN. [Concomitant]
     Active Substance: BACLOFEN

REACTIONS (15)
  - Nephrolithiasis [Not Recovered/Not Resolved]
  - Intentional product use issue [Unknown]
  - Constipation [Recovered/Resolved]
  - Incorrect drug administration rate [Unknown]
  - Pain [Not Recovered/Not Resolved]
  - Back pain [Not Recovered/Not Resolved]
  - Off label use [Unknown]
  - Blood pressure systolic increased [Unknown]
  - Back pain [Unknown]
  - Blood pressure systolic increased [Unknown]
  - Bone density decreased [Not Recovered/Not Resolved]
  - Back pain [Not Recovered/Not Resolved]
  - Intestinal obstruction [Recovered/Resolved]
  - Weight fluctuation [Unknown]
  - Infusion related reaction [Unknown]

NARRATIVE: CASE EVENT DATE: 2013
